FAERS Safety Report 5494106-6 (Version None)
Quarter: 2007Q4

REPORT INFORMATION
  Report Type: 
  Country: None (occurrence: None)
  Receive Date: 20071022
  Receipt Date: 20071009
  Transmission Date: 20080405
  Serious: Yes (Hospitalization)
  Sender: FDA-Public Use
  Company Number: VNL_00718_2007

PATIENT
  Age: 81 Year
  Sex: Female
  Weight: 42.1845 kg

DRUGS (1)
  1. APOKYN [Suspect]
     Indication: PARKINSON'S DISEASE
     Dosage: 0.4 ML 5X/DAY SUBCUTANEOUS
     Route: 058

REACTIONS (3)
  - ANAEMIA [None]
  - FALL [None]
  - MALNUTRITION [None]
